FAERS Safety Report 17883748 (Version 5)
Quarter: 2020Q3

REPORT INFORMATION
  Report Type: Other
  Country: JP (occurrence: JP)
  Receive Date: 20200611
  Receipt Date: 20200920
  Transmission Date: 20201103
  Serious: Yes (Hospitalization, Other)
  Sender: FDA-Public Use
  Company Number: JP-ROCHE-2616969

PATIENT
  Age: 51 Year
  Sex: Male
  Weight: 65 kg

DRUGS (4)
  1. PACLITAXEL. [Suspect]
     Active Substance: PACLITAXEL
     Indication: LUNG ADENOCARCINOMA
     Dosage: DOSE INTERVAL UNCERTAIN
     Route: 041
     Dates: start: 20200521
  2. ATEZOLIZUMAB. [Suspect]
     Active Substance: ATEZOLIZUMAB
     Indication: LUNG ADENOCARCINOMA
     Dosage: 09/JUL/2020 MOST RECENT DOSE OF ATEZOLIZUMAB
     Route: 041
     Dates: start: 20200521
  3. CARBOPLATIN. [Suspect]
     Active Substance: CARBOPLATIN
     Indication: LUNG ADENOCARCINOMA
     Dosage: DOSE INTERVAL UNCERTAIN
     Route: 041
     Dates: start: 20200521
  4. BEVACIZUMAB. [Suspect]
     Active Substance: BEVACIZUMAB
     Indication: LUNG ADENOCARCINOMA
     Dosage: 09/JUL/2020, THE PATIENT RECEIVED MOST RECENT DOSE
     Route: 041
     Dates: start: 20200521

REACTIONS (5)
  - Erythema multiforme [Recovered/Resolved]
  - White blood cell count decreased [Unknown]
  - Lymphocyte count decreased [Unknown]
  - Myalgia [Unknown]
  - Hypersensitivity [Unknown]

NARRATIVE: CASE EVENT DATE: 20200528
